FAERS Safety Report 20008447 (Version 1)
Quarter: 2021Q4

REPORT INFORMATION
  Report Type: Spontaneous
  Country: NL (occurrence: NL)
  Receive Date: 20211028
  Receipt Date: 20211028
  Transmission Date: 20220303
  Serious: Yes (Life-Threatening, Hospitalization)
  Sender: FDA-Public Use
  Company Number: NL-SLATE RUN PHARMACEUTICALS-21NL000742

PATIENT

DRUGS (4)
  1. BUPROPION HYDROCHLORIDE [Suspect]
     Active Substance: BUPROPION HYDROCHLORIDE
     Indication: Suicide attempt
     Dosage: 1500 MILLIGRAM, SINGLE
     Route: 048
  2. AMLODIPINE [Suspect]
     Active Substance: AMLODIPINE BESYLATE
     Indication: Suicide attempt
     Dosage: 300 MILLIGRAM, SINGLE
     Route: 048
  3. ALPRAZOLAM [Suspect]
     Active Substance: ALPRAZOLAM
     Indication: Suicide attempt
     Dosage: 3 MILLIGRAM, SINGLE
     Route: 048
  4. ZOLPIDEM [Suspect]
     Active Substance: ZOLPIDEM TARTRATE
     Indication: Suicide attempt
     Dosage: UNK, SINGLE
     Route: 048

REACTIONS (9)
  - Overdose [Recovering/Resolving]
  - Suicide attempt [Recovering/Resolving]
  - Lethargy [Recovering/Resolving]
  - Circulatory collapse [Recovering/Resolving]
  - Haemodynamic instability [Recovering/Resolving]
  - Distributive shock [Recovering/Resolving]
  - Metabolic acidosis [Recovering/Resolving]
  - Blood pressure decreased [Recovering/Resolving]
  - Dysarthria [Recovering/Resolving]
